FAERS Safety Report 5404744-4 (Version None)
Quarter: 2007Q3

REPORT INFORMATION
  Report Type: 
  Country: None (occurrence: None)
  Receive Date: 20070801
  Receipt Date: 20070717
  Transmission Date: 20080115
  Serious: Yes (Hospitalization)
  Sender: FDA-Public Use
  Company Number: 2007BM000084

PATIENT
  Age: 47 Year
  Sex: Female

DRUGS (6)
  1. PREDNISOLONE [Suspect]
     Indication: ANTI-NEUTROPHIL CYTOPLASMIC ANTIBODY POSITIVE VASCULITIS
     Dosage: 0.8 MG/KG; QD; PO
     Route: 048
     Dates: start: 20050101
  2. ORAPRED [Suspect]
  3. FLUCONAZOLE [Concomitant]
  4. TRIMETHOPRIM [Concomitant]
  5. SULFAMETHOXAZOLE [Concomitant]
  6. AMPHOTERICIN B [Concomitant]

REACTIONS (9)
  - BRONCHOPULMONARY ASPERGILLOSIS [None]
  - COUGH [None]
  - DYSPNOEA [None]
  - FATIGUE [None]
  - HAEMOPTYSIS [None]
  - MYCETOMA MYCOTIC [None]
  - PYREXIA [None]
  - RESPIRATORY FAILURE [None]
  - VASCULITIS [None]
